FAERS Safety Report 4589341-5 (Version None)
Quarter: 2005Q1

REPORT INFORMATION
  Report Type: 
  Country: None (occurrence: None)
  Receive Date: 20050216
  Receipt Date: 20050204
  Transmission Date: 20050727
  Serious: Yes (Other)
  Sender: FDA-Public Use
  Company Number: 2005-BP-01729RO

PATIENT
  Age: 37 Year
  Sex: Male

DRUGS (4)
  1. LEUCOVORIN CALCIUM [Suspect]
     Indication: COLON CANCER
     Dosage: 75 MG/DAY, PO
     Route: 048
     Dates: start: 20040716, end: 20040717
  2. UFT [Suspect]
     Indication: COLON CANCER
     Dosage: 5 CAPSULES/DAY, PO
     Route: 048
     Dates: start: 20040716, end: 20040717
  3. TAGAMET [Concomitant]
  4. GASMOTIN (MOSAPRIDE CITRATE) [Concomitant]

REACTIONS (2)
  - DIARRHOEA [None]
  - HEADACHE [None]
